FAERS Safety Report 24208827 (Version 2)
Quarter: 2024Q3

REPORT INFORMATION
  Report Type: Spontaneous
  Country: PT (occurrence: PT)
  Receive Date: 20240814
  Receipt Date: 20240827
  Transmission Date: 20241017
  Serious: Yes (Death)
  Sender: GILEAD
  Company Number: PT-GILEAD-2024-0683844

PATIENT
  Age: 70 Year
  Sex: Male

DRUGS (2)
  1. VEKLURY [Suspect]
     Active Substance: REMDESIVIR
     Indication: COVID-19
     Dosage: 100 MG
     Route: 042
     Dates: start: 20220205, end: 20220208
  2. VEKLURY [Suspect]
     Active Substance: REMDESIVIR
     Dosage: 200 MG AT THE FIRST DOSE; 100 MG AT THE REMAINING 4 DOSES
     Route: 042
     Dates: start: 20220204, end: 20220204

REACTIONS (1)
  - Drug ineffective [Fatal]

NARRATIVE: CASE EVENT DATE: 20220324
